FAERS Safety Report 13066408 (Version 1)
Quarter: 2016Q4

REPORT INFORMATION
  Report Type: Report from Study
  Country: US (occurrence: US)
  Receive Date: 20161227
  Receipt Date: 20161227
  Transmission Date: 20170207
  Serious: Yes (Other)
  Sender: FDA-Public Use
  Company Number: US-009507513-1612USA011426

PATIENT
  Age: 80 Year
  Sex: Male

DRUGS (6)
  1. VITAMINS (UNSPECIFIED) [Concomitant]
     Active Substance: VITAMINS
     Dosage: UNK
  2. VITAMIN D [Concomitant]
     Active Substance: CHOLECALCIFEROL
     Dosage: UNK
  3. PEMBROLIZUMAB. [Suspect]
     Active Substance: PEMBROLIZUMAB
     Indication: MALIGNANT MELANOMA STAGE IV
     Dosage: UNK, Q3W
     Route: 042
     Dates: start: 201602, end: 20161209
  4. XANAX [Concomitant]
     Active Substance: ALPRAZOLAM
     Dosage: UNK
  5. SIMVASTATIN TABLETS, USP [Concomitant]
     Active Substance: SIMVASTATIN
     Dosage: UNK
     Route: 048
  6. LOSARTAN POTASSIUM TABLETS [Concomitant]
     Active Substance: LOSARTAN POTASSIUM
     Dosage: UNK
     Route: 048

REACTIONS (10)
  - Malignant neoplasm progression [Unknown]
  - Blood magnesium decreased [Unknown]
  - Neuropathy peripheral [Unknown]
  - Pruritus [Unknown]
  - Dizziness [Unknown]
  - Rash [Unknown]
  - Depressed mood [Unknown]
  - Asthenia [Unknown]
  - Therapeutic response decreased [Unknown]
  - Arthralgia [Unknown]

NARRATIVE: CASE EVENT DATE: 2016
